FAERS Safety Report 9331872 (Version 2)
Quarter: 2013Q3

REPORT INFORMATION
  Report Type: Spontaneous
  Country: US (occurrence: None)
  Receive Date: 20130603
  Receipt Date: 20130705
  Transmission Date: 20140515
  Serious: Yes (Other)
  Sender: FDA-Public Use
  Company Number: ACO_36480_2013

PATIENT
  Age: 56 Year
  Sex: Female

DRUGS (3)
  1. AMPYRA [Suspect]
     Indication: PRODUCT USED FOR UNKNOWN INDICATION
     Dates: start: 2003, end: 201105
  2. BACLOFEN [Suspect]
     Indication: PRODUCT USED FOR UNKNOWN INDICATION
     Route: 037
  3. COPAXONE (GLATIRAMER ACETATE) [Concomitant]

REACTIONS (6)
  - Subdural haematoma [None]
  - Fall [None]
  - Gait disturbance [None]
  - Asthenia [None]
  - Bladder disorder [None]
  - Muscle spasticity [None]
